FAERS Safety Report 22225285 (Version 1)
Quarter: 2023Q2

REPORT INFORMATION
  Report Type: Spontaneous
  Country: US (occurrence: None)
  Receive Date: 20230417
  Receipt Date: 20230417
  Transmission Date: 20230722
  Serious: Yes (Death)
  Sender: FDA-Public Use
  Company Number: None

PATIENT
  Sex: Male

DRUGS (12)
  1. PIRFENIDONE [Suspect]
     Active Substance: PIRFENIDONE
     Indication: Idiopathic pulmonary fibrosis
     Dosage: FREQUENCY : 3 TIMES A DAY;?
     Route: 048
     Dates: start: 20220624, end: 20230411
  2. ASPIRIN TAB 325MG [Concomitant]
  3. CARVEDILOL TAB 12.5MG [Concomitant]
  4. ESBRIET [Concomitant]
     Active Substance: PIRFENIDONE
  5. LOSARTAN POT TAB 100MG [Concomitant]
  6. METFORMIN TAB 850MG [Concomitant]
  7. MONTELUKAST [Concomitant]
     Active Substance: MONTELUKAST SODIUM
  8. NEXIUM CAP 40MG [Concomitant]
  9. ONDANSETRON [Concomitant]
     Active Substance: ONDANSETRON
  10. OXYCOD/APAP TAB 5-325MG [Concomitant]
  11. TIZANIDINE CAP 4MG [Concomitant]
  12. TRAZODONE [Concomitant]
     Active Substance: TRAZODONE HYDROCHLORIDE

REACTIONS (1)
  - Death [None]
